FAERS Safety Report 14131980 (Version 1)
Quarter: 2017Q4

REPORT INFORMATION
  Report Type: Spontaneous
  Country: AT (occurrence: AT)
  Receive Date: 20171026
  Receipt Date: 20171026
  Transmission Date: 20180321
  Serious: Yes (Hospitalization, Other)
  Sender: FDA-Public Use
  Company Number: AT-MYLANLABS-2017M1066912

PATIENT
  Age: 45 Year
  Sex: Male
  Weight: 72 kg

DRUGS (62)
  1. ADAMON LONG RETARD 150 MG-FILMTABLETTEN [Suspect]
     Active Substance: TRAMADOL HYDROCHLORIDE
     Dosage: 300 MG, UNK
     Dates: start: 20170707, end: 20170711
  2. APREDNISLON [Suspect]
     Active Substance: PREDNISOLONE
     Dosage: 50 MG, UNK
     Dates: start: 20170614, end: 20170616
  3. SEROQUEL [Suspect]
     Active Substance: QUETIAPINE FUMARATE
     Dosage: 800 MG, UNK
     Dates: start: 20170628, end: 20170710
  4. CISORDINOL                         /00876703/ [Suspect]
     Active Substance: ZUCLOPENTHIXOL
     Dosage: 20 MG, UNK
     Dates: start: 20170623, end: 20170625
  5. CISORDINOL                         /00876703/ [Suspect]
     Active Substance: ZUCLOPENTHIXOL
     Dosage: 10 MG, UNK
     Dates: start: 20170710, end: 20170710
  6. TEMESTA                            /00273201/ [Concomitant]
     Active Substance: LORAZEPAM
     Indication: PRODUCT USED FOR UNKNOWN INDICATION
     Dosage: 2.5 MG, UNK
     Dates: start: 20170602, end: 20170602
  7. TEMESTA                            /00273201/ [Concomitant]
     Active Substance: LORAZEPAM
     Dosage: 2 MG, UNK
     Dates: start: 20170603, end: 20170603
  8. TEMESTA                            /00273201/ [Concomitant]
     Active Substance: LORAZEPAM
     Dosage: 7.5 MG, UNK
     Dates: start: 20170630, end: 20170630
  9. DEPAKINE                           /00228501/ [Concomitant]
     Active Substance: VALPROIC ACID
     Dosage: 500 MG, UNK
     Dates: start: 20170611, end: 20170611
  10. SEROQUEL [Suspect]
     Active Substance: QUETIAPINE FUMARATE
     Indication: PRODUCT USED FOR UNKNOWN INDICATION
     Dosage: 300 MG, UNK
     Dates: start: 20170603, end: 20170620
  11. SEROQUEL [Suspect]
     Active Substance: QUETIAPINE FUMARATE
     Dosage: 400 MG, UNK
     Dates: start: 20170711, end: 20170711
  12. CISORDINOL                         /00876703/ [Suspect]
     Active Substance: ZUCLOPENTHIXOL
     Dosage: 10 MG, UNK
     Dates: start: 20170622, end: 20170622
  13. NOVALGIN [Suspect]
     Active Substance: METAMIZOLE SODIUM
     Indication: PRODUCT USED FOR UNKNOWN INDICATION
     Dosage: 500 MG, UNK
     Route: 048
     Dates: start: 20170617, end: 20170621
  14. TEMESTA                            /00273201/ [Concomitant]
     Active Substance: LORAZEPAM
     Dosage: 2 MG, UNK
     Dates: start: 20170607, end: 20170607
  15. TEMESTA                            /00273201/ [Concomitant]
     Active Substance: LORAZEPAM
     Dosage: 10 MG, UNK
     Dates: start: 20170627, end: 20170628
  16. TEMESTA                            /00273201/ [Concomitant]
     Active Substance: LORAZEPAM
     Dosage: 6.25 MG, UNK
     Dates: start: 20170701, end: 20170701
  17. TEMESTA                            /00273201/ [Concomitant]
     Active Substance: LORAZEPAM
     Dosage: 3.75 MG, UNK
     Dates: start: 20170705, end: 20170705
  18. NACL [Concomitant]
     Active Substance: SODIUM CHLORIDE
     Indication: PRODUCT USED FOR UNKNOWN INDICATION
     Dosage: 1 G, UNK
     Dates: start: 20170621, end: 20170623
  19. NACL [Concomitant]
     Active Substance: SODIUM CHLORIDE
     Dosage: 3 G, UNK
     Dates: start: 20170703, end: 20170706
  20. APREDNISLON [Suspect]
     Active Substance: PREDNISOLONE
     Indication: PRODUCT USED FOR UNKNOWN INDICATION
     Dosage: 25 MG, UNK
     Dates: start: 20170603, end: 20170613
  21. APREDNISLON [Suspect]
     Active Substance: PREDNISOLONE
     Dosage: 75 MG, UNK
     Dates: start: 20170622, end: 20170627
  22. CISORDINOL                         /00876703/ [Suspect]
     Active Substance: ZUCLOPENTHIXOL
     Dosage: 20 MG, UNK
     Dates: start: 20170627, end: 20170706
  23. TRAMAL [Concomitant]
     Active Substance: TRAMADOL
     Dosage: 300 MG, UNK
     Dates: start: 20170619, end: 20170619
  24. PANTOLOC                           /01263204/ [Concomitant]
     Active Substance: PANTOPRAZOLE SODIUM
     Indication: PRODUCT USED FOR UNKNOWN INDICATION
     Dosage: 40 MG, UNK
     Dates: start: 20170615
  25. ADAMON LONG RETARD 150 MG-FILMTABLETTEN [Suspect]
     Active Substance: TRAMADOL HYDROCHLORIDE
     Indication: PRODUCT USED FOR UNKNOWN INDICATION
     Dosage: 150 MG, UNK
     Dates: start: 20170628, end: 20170706
  26. DEPAKINE                           /00228501/ [Concomitant]
     Active Substance: VALPROIC ACID
     Indication: PRODUCT USED FOR UNKNOWN INDICATION
     Dosage: 1 G, UNK
     Dates: start: 20170603, end: 20170610
  27. TRAMAL [Concomitant]
     Active Substance: TRAMADOL
     Dosage: 300 MG, UNK
     Dates: start: 20170615, end: 20170615
  28. TRAMAL [Concomitant]
     Active Substance: TRAMADOL
     Dosage: 150 MG, UNK
     Dates: start: 20170620, end: 20170620
  29. TRAMAL [Concomitant]
     Active Substance: TRAMADOL
     Dosage: 75 MG, UNK
     Dates: start: 20170621, end: 20170621
  30. XANOR [Concomitant]
     Active Substance: ALPRAZOLAM
     Indication: PRODUCT USED FOR UNKNOWN INDICATION
     Dosage: 1.5 MG, UNK
     Dates: start: 20170621, end: 20170626
  31. KCL [Concomitant]
     Active Substance: POTASSIUM CHLORIDE
     Indication: PRODUCT USED FOR UNKNOWN INDICATION
     Dosage: 900 MG, UNK
     Dates: start: 20170707, end: 20170710
  32. APREDNISLON [Suspect]
     Active Substance: PREDNISOLONE
     Dosage: 75 MG, UNK
     Dates: start: 20170617, end: 20170617
  33. APREDNISLON [Suspect]
     Active Substance: PREDNISOLONE
     Dosage: 37.5 MG, UNK
     Dates: start: 20170701, end: 20170703
  34. APREDNISLON [Suspect]
     Active Substance: PREDNISOLONE
     Dosage: 12.5 MG, UNK
     Dates: start: 20170714
  35. SEROQUEL [Suspect]
     Active Substance: QUETIAPINE FUMARATE
     Dosage: 400 MG, UNK
     Dates: start: 20170627, end: 20170627
  36. SOLIAN [Suspect]
     Active Substance: AMISULPRIDE
     Indication: PRODUCT USED FOR UNKNOWN INDICATION
     Dosage: 100 MG, UNK
     Dates: start: 20170627, end: 20170705
  37. SOLIAN [Suspect]
     Active Substance: AMISULPRIDE
     Dosage: 200 MG, UNK
     Dates: start: 20170707, end: 20170709
  38. TEMESTA                            /00273201/ [Concomitant]
     Active Substance: LORAZEPAM
     Dosage: 5 MG, UNK
     Dates: start: 20170702, end: 20170704
  39. ALVESCO [Concomitant]
     Active Substance: CICLESONIDE
     Indication: PRODUCT USED FOR UNKNOWN INDICATION
     Dosage: 160 ?G, UNK
     Dates: start: 20170603, end: 20170611
  40. TRAMAL [Concomitant]
     Active Substance: TRAMADOL
     Dosage: 400 MG, UNK
     Dates: start: 20170616, end: 20170617
  41. APREDNISLON [Suspect]
     Active Substance: PREDNISOLONE
     Dosage: 100 MG, UNK
     Dates: start: 20170618, end: 20170621
  42. APREDNISLON [Suspect]
     Active Substance: PREDNISOLONE
     Dosage: 50 MG, UNK
     Dates: start: 20170628, end: 20170630
  43. SOLIAN [Suspect]
     Active Substance: AMISULPRIDE
     Dosage: 150 MG, UNK
     Dates: start: 20170710, end: 20170710
  44. SOLIAN [Suspect]
     Active Substance: AMISULPRIDE
     Dosage: 50 MG, UNK
     Dates: start: 20170711, end: 20170711
  45. TEMESTA                            /00273201/ [Concomitant]
     Active Substance: LORAZEPAM
     Dosage: 1 MG, UNK
     Dates: start: 20170604, end: 20170606
  46. TEMESTA                            /00273201/ [Concomitant]
     Active Substance: LORAZEPAM
     Dosage: 8.75 MG, UNK
     Dates: start: 20170629, end: 20170629
  47. ZYPREXA [Concomitant]
     Active Substance: OLANZAPINE
     Indication: PRODUCT USED FOR UNKNOWN INDICATION
     Dosage: 10 MG, UNK
     Dates: start: 20170603, end: 20170603
  48. TRAMAL [Concomitant]
     Active Substance: TRAMADOL
     Dosage: 325 MG, UNK
     Dates: start: 20170618, end: 20170618
  49. TRAMAL [Concomitant]
     Active Substance: TRAMADOL
     Dosage: 150 MG, UNK
     Dates: start: 20170621, end: 20170627
  50. TRITTICO [Suspect]
     Active Substance: TRAZODONE HYDROCHLORIDE
     Indication: PRODUCT USED FOR UNKNOWN INDICATION
     Dosage: 150 MG, UNK
     Dates: start: 20170602, end: 20170703
  51. SEROQUEL [Suspect]
     Active Substance: QUETIAPINE FUMARATE
     Dosage: 600 MG, UNK
     Dates: start: 20170621, end: 20170626
  52. CISORDINOL                         /00876703/ [Suspect]
     Active Substance: ZUCLOPENTHIXOL
     Indication: PRODUCT USED FOR UNKNOWN INDICATION
     Dosage: 100 MG, UNK
     Dates: start: 20170607, end: 20170607
  53. CISORDINOL                         /00876703/ [Suspect]
     Active Substance: ZUCLOPENTHIXOL
     Dosage: 40 MG, UNK
     Dates: start: 20170626, end: 20170626
  54. SOLIAN [Suspect]
     Active Substance: AMISULPRIDE
     Dosage: 150 MG, UNK
     Dates: start: 20170706, end: 20170706
  55. TEMESTA                            /00273201/ [Concomitant]
     Active Substance: LORAZEPAM
     Dosage: 1 MG, UNK
     Dates: start: 20170608, end: 20170622
  56. APREDNISLON [Suspect]
     Active Substance: PREDNISOLONE
     Dosage: 50 MG, UNK
     Dates: start: 20170704, end: 20170710
  57. APREDNISLON [Suspect]
     Active Substance: PREDNISOLONE
     Dosage: 25 MG, UNK
     Dates: start: 20170711, end: 20170713
  58. NOVALGIN [Suspect]
     Active Substance: METAMIZOLE SODIUM
     Dosage: 2 G, UNK
     Route: 048
     Dates: start: 20170620, end: 20170705
  59. NOVALGIN [Suspect]
     Active Substance: METAMIZOLE SODIUM
     Dosage: 1 G, UNK
     Route: 048
     Dates: start: 20170709, end: 20170709
  60. TEMESTA                            /00273201/ [Concomitant]
     Active Substance: LORAZEPAM
     Dosage: 3.75 MG, UNK
     Dates: start: 20170623, end: 20170623
  61. TEMESTA                            /00273201/ [Concomitant]
     Active Substance: LORAZEPAM
     Dosage: 2.5 MG, UNK
     Dates: start: 20170706, end: 20170710
  62. TRAMAL [Concomitant]
     Active Substance: TRAMADOL
     Indication: PRODUCT USED FOR UNKNOWN INDICATION
     Dosage: 200 MG, UNK
     Dates: start: 20170614, end: 20170614

REACTIONS (1)
  - Liver function test increased [Recovered/Resolved]

NARRATIVE: CASE EVENT DATE: 20170703
